FAERS Safety Report 4885464-1 (Version None)
Quarter: 2005Q4

REPORT INFORMATION
  Report Type: 
  Country: None (occurrence: None)
  Receive Date: 20051216
  Receipt Date: 20050914
  Transmission Date: 20060501
  Serious: Yes (Hospitalization)
  Sender: FDA-Public Use
  Company Number: 2005128432

PATIENT
  Age: 69 Year
  Sex: Female
  Weight: 75.7507 kg

DRUGS (10)
  1. ARTHROTEC [Suspect]
     Indication: ARTHRALGIA
     Dosage: 100 MG (50 MG, 2 IN 1 D), ORAL
     Route: 048
     Dates: start: 20050819, end: 20050819
  2. ARTHROTEC [Suspect]
     Indication: SHOULDER PAIN
     Dosage: 100 MG (50 MG, 2 IN 1 D), ORAL
     Route: 048
     Dates: start: 20050819, end: 20050819
  3. AMIODARONE HCL [Concomitant]
  4. ZETIA [Concomitant]
  5. VERAPAMIL [Concomitant]
  6. DIOVAN [Concomitant]
  7. TRIAMTERENE AND HYDROCHLOROTHIAZID ^HARRIS^ (HYDROCHLOROTHIAZIDE, TRIA [Concomitant]
  8. CLONIDINE [Concomitant]
  9. ACIPHEX [Concomitant]
  10. BECONASE (BECLOMETASONE DIPROPIONATE) [Concomitant]

REACTIONS (4)
  - DIARRHOEA [None]
  - DIZZINESS [None]
  - NAUSEA [None]
  - RECTAL HAEMORRHAGE [None]
